FAERS Safety Report 10514645 (Version 2)
Quarter: 2014Q4

REPORT INFORMATION
  Report Type: Report from Study
  Country: US (occurrence: US)
  Receive Date: 20141013
  Receipt Date: 20141031
  Transmission Date: 20150528
  Serious: Yes (Hospitalization, Other)
  Sender: FDA-Public Use
  Company Number: US-GILEAD-2014-0117874

PATIENT
  Age: 63 Year
  Sex: Male

DRUGS (2)
  1. IDELALISIB [Suspect]
     Active Substance: IDELALISIB
     Dosage: UNK
  2. IDELALISIB [Suspect]
     Active Substance: IDELALISIB
     Indication: LYMPHOMA
     Dosage: 150 MG, BID
     Route: 048
     Dates: start: 20140903, end: 20140927

REACTIONS (7)
  - Hallucination [Unknown]
  - Heart rate increased [Unknown]
  - Cough [Unknown]
  - Upper respiratory tract infection [Unknown]
  - Confusional state [Unknown]
  - Dyspnoea [Unknown]
  - Pyrexia [Unknown]
